FAERS Safety Report 5493132-0 (Version None)
Quarter: 2007Q4

REPORT INFORMATION
  Report Type: 
  Country: None (occurrence: None)
  Receive Date: 20071019
  Receipt Date: 20071012
  Transmission Date: 20080405
  Serious: Yes (Other)
  Sender: FDA-Public Use
  Company Number: 2007SP020818

PATIENT
  Age: 75 Year
  Sex: Male

DRUGS (13)
  1. CELESTAMINE TAB [Suspect]
     Indication: NASOPHARYNGITIS
     Dosage: 2 DF; PO
     Route: 048
     Dates: start: 20071006
  2. KLARICID [Concomitant]
  3. THEOLONG [Concomitant]
  4. CYSTEINE HYDROCHLORIDE [Concomitant]
  5. SPIROPENT [Concomitant]
  6. HOKUNALIN [Concomitant]
  7. ADECUT [Concomitant]
  8. ZYLORIC [Concomitant]
  9. NATRIX [Concomitant]
  10. ZANTAC [Concomitant]
  11. LAC B [Concomitant]
  12. HARNAL D [Concomitant]
  13. CALONAL [Concomitant]

REACTIONS (4)
  - EYE INJURY [None]
  - FALL [None]
  - HEAD INJURY [None]
  - LOSS OF CONSCIOUSNESS [None]
